FAERS Safety Report 24035252 (Version 2)
Quarter: 2024Q3

REPORT INFORMATION
  Report Type: Spontaneous
  Country: NZ (occurrence: NZ)
  Receive Date: 20240701
  Receipt Date: 20240705
  Transmission Date: 20241017
  Serious: Yes (Disabling, Other)
  Sender: SANOFI AVENTIS
  Company Number: None

PATIENT
  Age: 67 Year
  Sex: Male

DRUGS (8)
  1. DOCETAXEL [Suspect]
     Active Substance: DOCETAXEL\DOCETAXEL ANHYDROUS
     Indication: Prostate cancer metastatic
     Dosage: UNK UNK, QCY
  2. DOCETAXEL [Suspect]
     Active Substance: DOCETAXEL\DOCETAXEL ANHYDROUS
     Indication: Metastases to lymph nodes
  3. ABIRATERONE [Concomitant]
     Active Substance: ABIRATERONE
     Indication: Prostate cancer metastatic
     Dosage: UNK
  4. ABIRATERONE [Concomitant]
     Active Substance: ABIRATERONE
     Indication: Metastases to lymph nodes
  5. PREDNISONE [Concomitant]
     Active Substance: PREDNISONE
     Indication: Prostate cancer metastatic
     Dosage: UNK
  6. PREDNISONE [Concomitant]
     Active Substance: PREDNISONE
     Indication: Metastases to lymph nodes
  7. GOSERELIN [Concomitant]
     Active Substance: GOSERELIN
     Indication: Prostate cancer metastatic
     Dosage: UNK UNK, Q3M
  8. GOSERELIN [Concomitant]
     Active Substance: GOSERELIN
     Indication: Metastases to lymph nodes

REACTIONS (4)
  - Cataract [Recovering/Resolving]
  - Blindness [Recovering/Resolving]
  - Visual impairment [Recovering/Resolving]
  - Cystoid macular oedema [Recovered/Resolved]
